FAERS Safety Report 5077363-X (Version None)
Quarter: 2006Q3

REPORT INFORMATION
  Report Type: 
  Country: None (occurrence: None)
  Receive Date: 20060810
  Receipt Date: 20060201
  Transmission Date: 20061208
  Serious: No
  Sender: FDA-Public Use
  Company Number: US-GLAXOSMITHKLINE-A0591937A

PATIENT
  Age: 55 Year
  Sex: Female

DRUGS (4)
  1. PAXIL [Suspect]
     Indication: DRUG USE FOR UNKNOWN INDICATION
     Dosage: 10MG PER DAY
     Route: 048
     Dates: start: 20060101
  2. ALPRAZOLAM [Concomitant]
  3. LUNESTA [Concomitant]
  4. DESIPRAMINE HCL [Concomitant]

REACTIONS (1)
  - HEADACHE [None]
